FAERS Safety Report 9564798 (Version 2)
Quarter: 2014Q1

REPORT INFORMATION
  Report Type: Spontaneous
  Country: US (occurrence: US)
  Receive Date: 20130930
  Receipt Date: 20140116
  Transmission Date: 20141002
  Serious: Yes (Death, Life-Threatening, Hospitalization, Disabling)
  Sender: FDA-Public Use
  Company Number: US-JNJFOC-20130913337

PATIENT
  Age: 84 Year
  Sex: Male

DRUGS (10)
  1. ZYTIGA [Suspect]
     Indication: PROSTATE CANCER METASTATIC
     Route: 048
     Dates: start: 201307, end: 20130804
  2. COLACE [Concomitant]
     Route: 065
  3. TYLENOL [Concomitant]
     Route: 065
  4. PREDNISONE [Concomitant]
     Indication: PROSTATE CANCER METASTATIC
     Route: 065
  5. PANTOPRAZOLE [Concomitant]
     Indication: GASTROOESOPHAGEAL REFLUX DISEASE
     Route: 065
  6. LOSARTAN [Concomitant]
     Indication: HYPERTENSION
     Route: 065
  7. QUALAQUIN [Concomitant]
     Indication: MUSCLE SPASMS
     Route: 065
  8. ZOMETA [Concomitant]
     Indication: METASTATIC NEOPLASM
     Route: 065
  9. MIRALAX [Concomitant]
     Route: 065
  10. CALCIUM [Concomitant]
     Route: 065

REACTIONS (1)
  - Interstitial lung disease [Fatal]
